FAERS Safety Report 7601921-9 (Version None)
Quarter: 2011Q3

REPORT INFORMATION
  Report Type: 
  Country: None (occurrence: None)
  Receive Date: 20110711
  Receipt Date: 20110707
  Transmission Date: 20111222
  Serious: Yes (Other)
  Sender: FDA-Public Use
  Company Number: US-PFIZER INC-2011154668

PATIENT
  Sex: Female

DRUGS (3)
  1. GEODON [Suspect]
     Dosage: 40 MG, 2X/DAY
  2. GEODON [Suspect]
     Dosage: 60 MG, 2X/DAY
  3. GEODON [Suspect]
     Dosage: 20 MG, 2X/DAY

REACTIONS (1)
  - AKATHISIA [None]
